FAERS Safety Report 12892179 (Version 1)
Quarter: 2016Q4

REPORT INFORMATION
  Report Type: Spontaneous
  Country: US (occurrence: US)
  Receive Date: 20161026
  Receipt Date: 20161026
  Transmission Date: 20170207
  Serious: Yes (Hospitalization)
  Sender: FDA-Public Use
  Company Number: None

PATIENT
  Age: 85 Year
  Sex: Female

DRUGS (13)
  1. HCTZ [Concomitant]
     Active Substance: HYDROCHLOROTHIAZIDE
  2. ROZEREM [Concomitant]
     Active Substance: RAMELTEON
  3. METOPROLOL. [Concomitant]
     Active Substance: METOPROLOL
  4. TRAZODONE [Concomitant]
     Active Substance: TRAZODONE HYDROCHLORIDE
  5. COLACE [Concomitant]
     Active Substance: DOCUSATE SODIUM
  6. MORPHINE [Concomitant]
     Active Substance: MORPHINE
  7. OMEPRAZOLE. [Concomitant]
     Active Substance: OMEPRAZOLE
  8. ASPIRIN. [Concomitant]
     Active Substance: ASPIRIN
  9. REVLIMID [Concomitant]
     Active Substance: LENALIDOMIDE
  10. POTASSIUM [Concomitant]
     Active Substance: POTASSIUM
  11. NINLARO [Suspect]
     Active Substance: IXAZOMIB
     Indication: PLASMA CELL MYELOMA
     Dosage: 1 CAP DAYS 1,8, + 15  OF 28 DAY CYCLE
     Route: 048
     Dates: start: 20160823
  12. NORVASC [Concomitant]
     Active Substance: AMLODIPINE BESYLATE
  13. DEXAMETHOSONE [Concomitant]

REACTIONS (2)
  - Drug intolerance [None]
  - Asthenia [None]
